FAERS Safety Report 14389753 (Version 3)
Quarter: 2018Q3

REPORT INFORMATION
  Report Type: Spontaneous
  Country: DE (occurrence: DE)
  Receive Date: 20180115
  Receipt Date: 20180725
  Transmission Date: 20181010
  Serious: Yes (Other)
  Sender: FDA-Public Use
  Company Number: DE-ALLERGAN-1801517US

PATIENT
  Age: 45 Year
  Sex: Female
  Weight: 84 kg

DRUGS (1)
  1. BOTOX [Suspect]
     Active Substance: ONABOTULINUMTOXINA
     Indication: URGE INCONTINENCE
     Dosage: 100 UNITS, SINGLE
     Route: 043

REACTIONS (6)
  - Asthenia [Not Recovered/Not Resolved]
  - Movement disorder [Not Recovered/Not Resolved]
  - Urinary hesitation [Not Recovered/Not Resolved]
  - Hypoaesthesia [Not Recovered/Not Resolved]
  - Extraocular muscle paresis [Not Recovered/Not Resolved]
  - Myasthenia gravis [Unknown]

NARRATIVE: CASE EVENT DATE: 201612
